FAERS Safety Report 5430447-6 (Version None)
Quarter: 2007Q3

REPORT INFORMATION
  Report Type: 
  Country: None (occurrence: None)
  Receive Date: 20070830
  Receipt Date: 20070821
  Transmission Date: 20080115
  Serious: Yes (Hospitalization, Other)
  Sender: FDA-Public Use
  Company Number: US-JNJFOC-20070804210

PATIENT
  Sex: Female
  Weight: 56.7 kg

DRUGS (7)
  1. REMICADE [Suspect]
     Route: 042
  2. REMICADE [Suspect]
     Route: 042
  3. REMICADE [Suspect]
     Indication: RHEUMATOID ARTHRITIS
     Route: 042
  4. METHOTREXATE [Concomitant]
     Indication: RHEUMATOID ARTHRITIS
  5. ACCUPRIL [Concomitant]
     Indication: HYPERTENSION
  6. PREDNISONE [Concomitant]
     Indication: RHEUMATOID ARTHRITIS
  7. VALTREX [Concomitant]
     Indication: HERPES ZOSTER

REACTIONS (5)
  - DEHYDRATION [None]
  - DIARRHOEA [None]
  - HERPES ZOSTER [None]
  - NAUSEA [None]
  - VOMITING [None]
